FAERS Safety Report 6227444-X (Version None)
Quarter: 2009Q2

REPORT INFORMATION
  Report Type: 
  Country: None (occurrence: None)
  Receive Date: 20090610
  Receipt Date: 20090610
  Transmission Date: 20091009
  Serious: No
  Sender: FDA-Public Use
  Company Number: None

PATIENT
  Age: 5 Month
  Sex: Male
  Weight: 5.4432 kg

DRUGS (1)
  1. MIRALAX [Suspect]
     Indication: CONSTIPATION
     Dosage: QD;PO
     Route: 048
     Dates: end: 20071122

REACTIONS (3)
  - DIARRHOEA [None]
  - IRRITABILITY [None]
  - LETHARGY [None]
